FAERS Safety Report 17362608 (Version 1)
Quarter: 2020Q1

REPORT INFORMATION
  Report Type: Spontaneous
  Country: DE (occurrence: DE)
  Receive Date: 20200203
  Receipt Date: 20200203
  Transmission Date: 20200409
  Serious: Yes (Other)
  Sender: FDA-Public Use
  Company Number: NVSC2020DE021231

PATIENT
  Age: 39 Year
  Sex: Female
  Weight: 86 kg

DRUGS (5)
  1. PREDNISOLONE. [Suspect]
     Active Substance: PREDNISOLONE
     Indication: URTICARIAL VASCULITIS
     Dosage: 5 MG, BID2SDO (BIS 5 MG/D) AT 0 - 37.2 GESTATIONAL WEEK
     Route: 048
     Dates: start: 20180916, end: 20190604
  2. ACICLOVIR [Concomitant]
     Active Substance: ACYCLOVIR
     Indication: GENITAL HERPES
     Dosage: 1200 MG, QD AT 36.3 - 37.2 GESTATIONAL WEEK
     Route: 048
     Dates: start: 20190529, end: 20190604
  3. MINPROSTIN [Concomitant]
     Active Substance: DINOPROSTONE
     Indication: LABOUR INDUCTION
     Dosage: AT 37.2 - 37.2 GESTATIONAL WEEK
     Route: 067
  4. L-THYROXINE [Concomitant]
     Active Substance: LEVOTHYROXINE
     Indication: HYPOTHYROIDISM
     Dosage: 50 UG, QD (AT 0 - 37.2 GESTATIONAL WEEK)
     Route: 048
     Dates: start: 20180916, end: 20190604
  5. MINPROSTIN [Concomitant]
     Active Substance: DINOPROSTONE
     Dosage: UNK
     Route: 067

REACTIONS (3)
  - Gestational diabetes [Recovered/Resolved]
  - Exposure during pregnancy [Recovered/Resolved]
  - Amniotic fluid volume increased [Recovered/Resolved]
